FAERS Safety Report 10431881 (Version 2)
Quarter: 2014Q4

REPORT INFORMATION
  Report Type: Spontaneous
  Country: US (occurrence: US)
  Receive Date: 20140905
  Receipt Date: 20141024
  Transmission Date: 20150528
  Serious: No
  Sender: FDA-Public Use
  Company Number: US-AMGEN-USASP2014067099

PATIENT
  Age: 34 Year
  Sex: Female

DRUGS (1)
  1. ENBREL [Suspect]
     Active Substance: ETANERCEPT
     Indication: RHEUMATOID ARTHRITIS
     Dosage: 50 MG, QWK
     Route: 065
     Dates: start: 20111025

REACTIONS (7)
  - Injection site haemorrhage [Unknown]
  - Skin striae [Not Recovered/Not Resolved]
  - Arthritis [Unknown]
  - Incorrect route of drug administration [Unknown]
  - Injection site bruising [Unknown]
  - Injection site pain [Unknown]
  - Wrong technique in drug usage process [Unknown]
